FAERS Safety Report 22970547 (Version 4)
Quarter: 2024Q2

REPORT INFORMATION
  Report Type: Spontaneous
  Country: DE (occurrence: DE)
  Receive Date: 20230922
  Receipt Date: 20240520
  Transmission Date: 20240716
  Serious: Yes (Other)
  Sender: FDA-Public Use
  Company Number: DE-KOREA IPSEN Pharma-2023-21640

PATIENT
  Sex: Female

DRUGS (3)
  1. NIVOLUMAB [Suspect]
     Active Substance: NIVOLUMAB
     Indication: Product used for unknown indication
  2. CABOMETYX [Suspect]
     Active Substance: CABOZANTINIB S-MALATE
     Indication: Product used for unknown indication
  3. CABOMETYX [Suspect]
     Active Substance: CABOZANTINIB S-MALATE

REACTIONS (2)
  - Tooth loss [Unknown]
  - Mucosal inflammation [Recovered/Resolved]
